FAERS Safety Report 9424535 (Version 1)
Quarter: 2013Q3

REPORT INFORMATION
  Report Type: Spontaneous
  Country: US (occurrence: US)
  Receive Date: 20130729
  Receipt Date: 20130729
  Transmission Date: 20140515
  Serious: No
  Sender: FDA-Public Use
  Company Number: US-BAYER-2013-090577

PATIENT
  Age: 48 Year
  Sex: Female
  Weight: 72 kg

DRUGS (3)
  1. ALEVE CAPLET [Suspect]
     Indication: ARTHRITIS
     Dosage: 2 DF, QD
     Route: 048
     Dates: start: 201302
  2. PHILLIPS^ LAXATIVE DIETARY SUPPLEMENT [Suspect]
     Dosage: 2 DF, QD
     Route: 048
     Dates: start: 20130715, end: 20130720
  3. METFORMIN [Concomitant]

REACTIONS (4)
  - Vomiting [Recovered/Resolved]
  - Incorrect drug administration duration [None]
  - Nausea [Not Recovered/Not Resolved]
  - Expired drug administered [None]
